FAERS Safety Report 5199972-X (Version None)
Quarter: 2007Q1

REPORT INFORMATION
  Report Type: 
  Country: None (occurrence: None)
  Receive Date: 20070105
  Receipt Date: 20061227
  Transmission Date: 20070707
  Serious: Yes (Hospitalization)
  Sender: FDA-Public Use
  Company Number: JP-MERCK-0612USA04090

PATIENT
  Sex: Female

DRUGS (3)
  1. FOSAMAX [Suspect]
     Route: 048
  2. [THERAPY UNSPECIFIED] [Concomitant]
     Route: 065
  3. ANALGESIC OR ANESTHETIC (UNSPECIFIED) [Suspect]
     Route: 065
     Dates: start: 20061201

REACTIONS (3)
  - GASTROINTESTINAL DISORDER [None]
  - MUSCULOSKELETAL DISORDER [None]
  - NAUSEA [None]
